FAERS Safety Report 21859164 (Version 1)
Quarter: 2023Q1

REPORT INFORMATION
  Report Type: Spontaneous
  Country: US (occurrence: US)
  Receive Date: 20230113
  Receipt Date: 20230113
  Transmission Date: 20230418
  Serious: Yes (Other)
  Sender: FDA-Public Use
  Company Number: US-SA-SAC20230112000072

PATIENT
  Sex: Female

DRUGS (1)
  1. AUBAGIO [Suspect]
     Active Substance: TERIFLUNOMIDE
     Indication: Multiple sclerosis
     Dosage: 14 MG, QD
     Route: 048
     Dates: start: 20200821

REACTIONS (10)
  - Neuropathy peripheral [Unknown]
  - Depression [Unknown]
  - Musculoskeletal stiffness [Unknown]
  - Muscle spasticity [Unknown]
  - Pain [Unknown]
  - Fatigue [Unknown]
  - Nasopharyngitis [Unknown]
  - Bladder disorder [Unknown]
  - Sexual dysfunction [Unknown]
  - Movement disorder [Unknown]
